FAERS Safety Report 5063392-9 (Version None)
Quarter: 2006Q3

REPORT INFORMATION
  Report Type: 
  Country: None (occurrence: None)
  Receive Date: 20060727
  Receipt Date: 20060720
  Transmission Date: 20061208
  Serious: Yes (Hospitalization, Other)
  Sender: FDA-Public Use
  Company Number: GB-BRISTOL-MYERS SQUIBB COMPANY-13450069

PATIENT
  Age: 40 Year
  Sex: Female

DRUGS (4)
  1. REYATAZ [Suspect]
     Indication: HIV INFECTION
     Route: 048
     Dates: start: 20060608
  2. RITONAVIR [Suspect]
     Indication: HIV INFECTION
     Dates: start: 20060608
  3. KALETRA [Suspect]
     Indication: HIV INFECTION
     Dates: start: 20010101
  4. TRUVADA [Suspect]
     Indication: HIV INFECTION
     Dosage: TENOFOVIR DISOPROXIL 245 MG + EMTRICITABINE 200 MG
     Dates: start: 20060101

REACTIONS (2)
  - NERVOUS SYSTEM DISORDER [None]
  - PARTIAL SEIZURES [None]
